FAERS Safety Report 19020754 (Version 1)
Quarter: 2021Q1

REPORT INFORMATION
  Report Type: Spontaneous
  Country: BR (occurrence: BR)
  Receive Date: 20210317
  Receipt Date: 20210317
  Transmission Date: 20210420
  Serious: Yes (Other)
  Sender: FDA-Public Use
  Company Number: BR-PRINSTON PHARMACEUTICAL INC.-2021PRN00093

PATIENT
  Age: 44 Year
  Sex: Male

DRUGS (1)
  1. CLONAZEPAM. [Suspect]
     Active Substance: CLONAZEPAM
     Indication: ANXIETY
     Dosage: EYE DROP; SINGLE DOSE OF CLONAZEPAM 0.25 MG; LEFT EYE

REACTIONS (1)
  - Angle closure glaucoma [Recovered/Resolved]
